FAERS Safety Report 14407561 (Version 8)
Quarter: 2018Q1

REPORT INFORMATION
  Report Type: Spontaneous
  Country: DE (occurrence: DE)
  Receive Date: 20180118
  Receipt Date: 20180329
  Transmission Date: 20180509
  Serious: Yes (Hospitalization, Other)
  Sender: FDA-Public Use
  Company Number: DE-PFIZER INC-2018021907

PATIENT
  Age: 92 Year
  Sex: Female

DRUGS (15)
  1. HALDOL [Interacting]
     Active Substance: HALOPERIDOL
     Indication: DEMENTIA
     Dosage: UNK
     Route: 065
     Dates: start: 20170301, end: 20170301
  2. ACETYLSALICYLSAEURE [Concomitant]
     Active Substance: ASPIRIN
     Dosage: 100 MG, UNK
     Route: 048
     Dates: start: 2014, end: 20170305
  3. ATORVASTATINE [Concomitant]
     Active Substance: ATORVASTATIN
     Dosage: 10 MG, DAILY
     Route: 048
     Dates: start: 2014, end: 20170305
  4. AMLODIPINE BESILATE [Interacting]
     Active Substance: AMLODIPINE BESYLATE
     Dosage: 5 MG, 1X/DAY, USE FOR LONGER TIME
     Route: 048
     Dates: end: 20170305
  5. RISPERDAL [Interacting]
     Active Substance: RISPERIDONE
     Indication: DEMENTIA
     Dosage: 1 MG, 1X/DAY
     Route: 048
     Dates: start: 20170303, end: 20170305
  6. ACTRAPID [Concomitant]
     Active Substance: INSULIN HUMAN
     Dosage: 11 IU, DAILY, USE FOR LONGER TIME
     Route: 058
     Dates: end: 20170305
  7. HCT [Interacting]
     Active Substance: HYDROCHLOROTHIAZIDE
     Dosage: USE FOR LONGER TIME
     Route: 048
     Dates: end: 20170305
  8. LEVEMIR [Concomitant]
     Active Substance: INSULIN DETEMIR
     Dosage: 4 IU, 1X/DAY USE FOR LONGER TIME
     Route: 058
     Dates: end: 20170305
  9. RAMIPRIL. [Suspect]
     Active Substance: RAMIPRIL
     Dosage: USE FOR LONGER TIME
     Route: 048
     Dates: end: 20170305
  10. RISPERDAL [Interacting]
     Active Substance: RISPERIDONE
     Indication: DELIRIUM
  11. PIPAMPERON [Concomitant]
     Active Substance: PIPAMPERONE HYDROCHLORIDE
     Indication: RESTLESSNESS
     Dosage: 20 MG, UNK
     Route: 048
     Dates: start: 20170302, end: 20170303
  12. DOMINAL (PROTHIPENDYL HYDROCHLORIDE) [Interacting]
     Active Substance: PROTHIPENDYL HYDROCHLORIDE
     Dosage: 80 MG, 1X/DAY
     Route: 048
     Dates: start: 20170214, end: 20170305
  13. METOPROLOL/METOPROLOL TARTRATE [Interacting]
     Active Substance: METOPROLOL TARTRATE
     Dosage: USE FOR LONGER TIME
     Route: 048
     Dates: end: 20170305
  14. HALDOL [Interacting]
     Active Substance: HALOPERIDOL
     Indication: DELIRIUM
     Dosage: 5 MG, UNK
     Dates: start: 20170302, end: 20170302
  15. PIPAMPERON [Concomitant]
     Active Substance: PIPAMPERONE HYDROCHLORIDE
     Dosage: 40 MG, UNK
     Route: 048
     Dates: start: 20170305

REACTIONS (7)
  - Bradycardia [Unknown]
  - Cardiogenic shock [Unknown]
  - Altered state of consciousness [Unknown]
  - Drug interaction [Unknown]
  - Acute myocardial infarction [Unknown]
  - Hypotension [Unknown]
  - Myocardial infarction [Unknown]

NARRATIVE: CASE EVENT DATE: 201703
